FAERS Safety Report 8339052 (Version 4)
Quarter: 2013Q2

REPORT INFORMATION
  Report Type: Spontaneous
  Country: US (occurrence: US)
  Receive Date: 20120117
  Receipt Date: 20130510
  Transmission Date: 20140414
  Serious: Yes (Other)
  Sender: FDA-Public Use
  Company Number: US-UCBSA-049151

PATIENT
  Age: 76 Year
  Sex: Female
  Weight: 88.5 kg

DRUGS (10)
  1. CIMZIA [Suspect]
     Indication: CROHN^S DISEASE
     Route: 058
     Dates: start: 2012
  2. CIMZIA [Suspect]
     Indication: CROHN^S DISEASE
     Route: 058
     Dates: end: 20120109
  3. CIMZIA [Suspect]
     Indication: CROHN^S DISEASE
     Route: 058
     Dates: start: 20090514, end: 2009
  4. CIMZIA [Suspect]
     Indication: CROHN^S DISEASE
     Route: 058
     Dates: start: 20090706
  5. SIMVASTATIN [Concomitant]
     Route: 048
  6. METROPROLO ER [Concomitant]
     Indication: CARDIAC DISORDER
     Route: 048
  7. DIPHEN [Concomitant]
     Route: 048
  8. HYDROCHLORTHIAZIDE [Concomitant]
  9. LEXAPRO [Concomitant]
     Route: 048
  10. MERCAPTO PURINE [Concomitant]
     Route: 048

REACTIONS (3)
  - Thrombosis [Not Recovered/Not Resolved]
  - Upper respiratory tract infection [Recovered/Resolved]
  - Oedema peripheral [Not Recovered/Not Resolved]
